FAERS Safety Report 9340708 (Version 2)
Quarter: 2013Q3

REPORT INFORMATION
  Report Type: Spontaneous
  Country: FR (occurrence: FR)
  Receive Date: 20130610
  Receipt Date: 20130916
  Transmission Date: 20140515
  Serious: Yes (Hospitalization)
  Sender: FDA-Public Use
  Company Number: FR-GLAXOSMITHKLINE-B0896457A

PATIENT
  Age: 33 Year
  Sex: Male

DRUGS (6)
  1. DEROXAT [Suspect]
     Indication: PRODUCT USED FOR UNKNOWN INDICATION
     Dosage: 20MG PER DAY
     Route: 048
  2. TROBALT [Suspect]
     Indication: PARTIAL SEIZURES
     Route: 048
     Dates: start: 201301
  3. RUFINAMIDE [Concomitant]
     Indication: PARTIAL SEIZURES
     Dosage: 1G TWICE PER DAY
     Route: 048
  4. VIMPAT [Concomitant]
     Indication: PARTIAL SEIZURES
     Dosage: 200MG TWICE PER DAY
     Route: 048
  5. EPITOMAX [Concomitant]
     Indication: PARTIAL SEIZURES
     Dosage: 100MG TWICE PER DAY
     Route: 048
  6. URBANYL [Concomitant]
     Indication: PARTIAL SEIZURES
     Dosage: 40MG PER DAY
     Route: 048

REACTIONS (10)
  - Urinary retention [Recovered/Resolved]
  - Constipation [Recovered/Resolved]
  - Headache [Unknown]
  - Feeling drunk [Unknown]
  - Prostatitis [Unknown]
  - Epilepsy [Recovered/Resolved]
  - Head injury [Unknown]
  - Somnolence [Unknown]
  - Subdural haematoma [Unknown]
  - Incorrect dose administered [Unknown]
